FAERS Safety Report 8068984 (Version 6)
Quarter: 2012Q4

REPORT INFORMATION
  Report Type: Report from Study
  Country: DE (occurrence: DE)
  Receive Date: 20110804
  Receipt Date: 20121121
  Transmission Date: 20130627
  Serious: Yes (Hospitalization)
  Sender: FDA-Public Use
  Company Number: DE-ROCHE-794329

PATIENT
  Age: 73 Year
  Sex: Male
  Weight: 80 kg

DRUGS (6)
  1. CAPECITABINE [Suspect]
     Indication: RECTAL CANCER
     Dosage: FREQ: ON DAYS 1-33 WITHOUT WEEKENDS
ACTUAL DOSE GIVEN AT LAST ADMIN: 3500MG
THERAPY HELD
     Route: 048
  2. OXALIPLATIN [Suspect]
     Indication: RECTAL CANCER
     Dosage: FREQ: ON DAYS 1, 8, 15, 22 AND 29 OF CYCLE
ACTUAL DOSE GIVEN AT LAST ADMIN: 105MG
THERAPY HELD
     Route: 042
  3. LOPERAMIDE [Concomitant]
     Indication: DIARRHOEA
     Route: 048
  4. BELOC-ZOK MITE [Concomitant]
     Indication: HYPERTENSION
     Route: 048
  5. HERZ ASS [Concomitant]
     Indication: HAEMODILUTION
     Route: 048
  6. SORTIS [Concomitant]
     Indication: HYPERCHOLESTEROLAEMIA
     Route: 048

REACTIONS (4)
  - Diarrhoea [Recovered/Resolved]
  - Urinary retention [Recovered/Resolved]
  - Proctalgia [Not Recovered/Not Resolved]
  - Gastrointestinal pain [Recovered/Resolved]
